FAERS Safety Report 17759159 (Version 2)
Quarter: 2020Q2

REPORT INFORMATION
  Report Type: Spontaneous
  Country: DK (occurrence: DK)
  Receive Date: 20200508
  Receipt Date: 20200511
  Transmission Date: 20200714
  Serious: Yes (Other)
  Sender: FDA-Public Use
  Company Number: DK-TEVA-2020-DK-1232740

PATIENT
  Age: 70 Year
  Sex: Male

DRUGS (5)
  1. LAMOTRIGIN TEVA [Suspect]
     Active Substance: LAMOTRIGINE
     Route: 048
  2. PHENERGAN [Concomitant]
     Active Substance: PROMETHAZINE HYDROCHLORIDE
     Route: 065
  3. ZONOCT [Concomitant]
     Active Substance: ZOLPIDEM TARTRATE
     Indication: AFFECTIVE DISORDER
     Route: 065
  4. FINASTERID [Concomitant]
     Active Substance: FINASTERIDE
     Route: 065
  5. CARDIOSTAD [Concomitant]
     Active Substance: LISINOPRIL
     Route: 065

REACTIONS (5)
  - Product use complaint [Unknown]
  - Foreign body in throat [Unknown]
  - Product physical issue [Unknown]
  - Product shape issue [Unknown]
  - Vomiting [Unknown]
